FAERS Safety Report 7207357-7 (Version None)
Quarter: 2011Q1

REPORT INFORMATION
  Report Type: 
  Country: None (occurrence: None)
  Receive Date: 20110103
  Receipt Date: 20101227
  Transmission Date: 20110831
  Serious: Yes (Hospitalization, Other)
  Sender: FDA-Public Use
  Company Number: BR-PFIZER INC-2009202441

PATIENT
  Age: 66 Year
  Sex: Female

DRUGS (3)
  1. DETRUSITOL [Suspect]
     Dosage: UNK
     Route: 048
  2. DETRUSITOL LA [Suspect]
     Indication: URINARY INCONTINENCE
     Dosage: 4 MG, 1X/DAY
     Route: 048
     Dates: start: 19901227
  3. BETAHISTINE HYDROCHLORIDE [Concomitant]
     Indication: LABYRINTHITIS
     Dosage: UNK

REACTIONS (8)
  - INTERNAL FIXATION OF FRACTURE [None]
  - GAIT DISTURBANCE [None]
  - OOPHORECTOMY [None]
  - HYSTERECTOMY [None]
  - FALL [None]
  - BRAIN OPERATION [None]
  - NEOPLASM MALIGNANT [None]
  - DRUG INEFFECTIVE [None]
